FAERS Safety Report 5701122-5 (Version None)
Quarter: 2008Q2

REPORT INFORMATION
  Report Type: 
  Country: None (occurrence: None)
  Receive Date: 20080410
  Receipt Date: 20080401
  Transmission Date: 20081010
  Serious: Yes (Hospitalization)
  Sender: FDA-Public Use
  Company Number: PL-ABBOTT-08P-129-0432944-00

PATIENT
  Age: 45 Year
  Sex: Male
  Weight: 62 kg

DRUGS (5)
  1. KALETRA [Suspect]
     Indication: HIV INFECTION
     Dosage: 800MG
     Route: 048
     Dates: start: 20070720, end: 20070814
  2. KALETRA [Suspect]
     Route: 048
     Dates: start: 20070816
  3. LAMIVUDINE [Concomitant]
     Indication: HIV INFECTION
  4. TENOFOVIR DISOPROXIL FUMARATE [Concomitant]
     Indication: HIV INFECTION
  5. ATV [Concomitant]
     Indication: HIV INFECTION

REACTIONS (8)
  - DIABETES MELLITUS [None]
  - HAEMOLYTIC ANAEMIA [None]
  - HYPERGLYCAEMIA [None]
  - LEUKOCYTOSIS [None]
  - NEURALGIA [None]
  - NEUROPATHY PERIPHERAL [None]
  - PAIN IN EXTREMITY [None]
  - PYREXIA [None]
